FAERS Safety Report 11044699 (Version 1)
Quarter: 2015Q2

REPORT INFORMATION
  Report Type: Spontaneous
  Country: VN (occurrence: VN)
  Receive Date: 20150417
  Receipt Date: 20150417
  Transmission Date: 20150821
  Serious: Yes (Death)
  Sender: FDA-Public Use
  Company Number: VN-009507513-1504VNM016965

PATIENT
  Sex: Male

DRUGS (1)
  1. SINGULAIR [Suspect]
     Active Substance: MONTELUKAST SODIUM
     Dosage: 1 TABLET, ONCE A DAY
     Route: 048
     Dates: start: 20140701

REACTIONS (3)
  - Chronic obstructive pulmonary disease [Fatal]
  - Death [Fatal]
  - Cardiac failure [Fatal]

NARRATIVE: CASE EVENT DATE: 201501
